FAERS Safety Report 5820118-6 (Version None)
Quarter: 2008Q3

REPORT INFORMATION
  Report Type: 
  Country: None (occurrence: None)
  Receive Date: 20080721
  Receipt Date: 20080711
  Transmission Date: 20090109
  Serious: Yes (Other)
  Sender: FDA-Public Use
  Company Number: SPV1-2008-01455

PATIENT
  Age: 45 Year
  Sex: Male
  Weight: 115.6 kg

DRUGS (2)
  1. VYVANSE [Suspect]
     Indication: ATTENTION DEFICIT/HYPERACTIVITY DISORDER
     Dosage: 70 MG, 1X/DAY:QD, ORAL
     Route: 048
     Dates: start: 20071201
  2. LEXAPRO [Suspect]
     Indication: DEPRESSION
     Dosage: MG, 1X/DAY:QD, ORAL
     Route: 048
     Dates: end: 20080101

REACTIONS (2)
  - BIPOLAR I DISORDER [None]
  - DRUG INEFFECTIVE [None]
